FAERS Safety Report 8182871-9 (Version None)
Quarter: 2012Q1

REPORT INFORMATION
  Report Type: 
  Country: None (occurrence: None)
  Receive Date: 20120305
  Receipt Date: 20120222
  Transmission Date: 20120608
  Serious: Yes (Other)
  Sender: FDA-Public Use
  Company Number: US-BRISTOL-MYERS SQUIBB COMPANY-16413643

PATIENT
  Sex: Male

DRUGS (1)
  1. ORENCIA [Suspect]
     Dosage: NO OF INF:4 LAST INF:9FEB2012

REACTIONS (3)
  - CARDIAC FAILURE CONGESTIVE [None]
  - PRURITUS [None]
  - ARTHRALGIA [None]
